FAERS Safety Report 4607581-3 (Version None)
Quarter: 2005Q1

REPORT INFORMATION
  Report Type: 
  Country: None (occurrence: None)
  Receive Date: 20050310
  Receipt Date: 20050223
  Transmission Date: 20050727
  Serious: Yes (Death)
  Sender: FDA-Public Use
  Company Number: 2005-0008090

PATIENT
  Age: 62 Year
  Sex: Male

DRUGS (1)
  1. HEPSERA [Suspect]
     Indication: HEPATITIS B
     Dosage: 10 MG, 1 IN 1 D, ORAL
     Route: 048
     Dates: end: 20050128

REACTIONS (2)
  - HEPATIC CANCER METASTATIC [None]
  - VISUAL ACUITY REDUCED [None]
